FAERS Safety Report 7921078-4 (Version None)
Quarter: 2011Q4

REPORT INFORMATION
  Report Type: 
  Country: None (occurrence: None)
  Receive Date: 20111117
  Receipt Date: 20111104
  Transmission Date: 20120403
  Serious: Yes (Disabling)
  Sender: FDA-Public Use
  Company Number: CA-MERCK-1111USA00862

PATIENT
  Sex: Female

DRUGS (2)
  1. FOSAMAX PLUS D [Suspect]
     Route: 048
     Dates: start: 20100101, end: 20110801
  2. FOSAMAX [Suspect]
     Route: 048
     Dates: start: 19950101, end: 20100101

REACTIONS (6)
  - DISCOMFORT [None]
  - GAIT DISTURBANCE [None]
  - INSOMNIA [None]
  - ARTHRALGIA [None]
  - MOBILITY DECREASED [None]
  - PAIN IN EXTREMITY [None]
